FAERS Safety Report 8348194-X (Version None)
Quarter: 2012Q2

REPORT INFORMATION
  Report Type: 
  Country: None (occurrence: None)
  Receive Date: 20120509
  Receipt Date: 20100803
  Transmission Date: 20120825
  Serious: No
  Sender: FDA-Public Use
  Company Number: US-TEVA-2010003660

PATIENT
  Sex: Female
  Weight: 72.64 kg

DRUGS (9)
  1. NUVIGIL [Suspect]
     Indication: SLEEP APNOEA SYNDROME
     Route: 048
     Dates: start: 20100101, end: 20100101
  2. NUVIGIL [Suspect]
     Dosage: 75 MILLIGRAM;
     Route: 048
     Dates: start: 20100601, end: 20100601
  3. NUVIGIL [Suspect]
     Dosage: 125 MILLIGRAM;
     Route: 048
     Dates: start: 20100601, end: 20100601
  4. NUVIGIL [Suspect]
     Dosage: 212.5 MILLIGRAM;
     Route: 048
     Dates: start: 20100601, end: 20100601
  5. PRILOSEC [Concomitant]
     Indication: GASTROOESOPHAGEAL REFLUX DISEASE
     Dates: start: 20020101
  6. NUVIGIL [Suspect]
     Dosage: 225 MILLIGRAM;
     Route: 048
     Dates: start: 20100601, end: 20100601
  7. TRAZODONE HCL [Concomitant]
     Dosage: 50 MILLIGRAM;
     Dates: start: 20080101
  8. ACYCLOVIR [Concomitant]
     Indication: HERPES VIRUS INFECTION
  9. FROVA [Concomitant]
     Indication: MIGRAINE

REACTIONS (6)
  - EMOTIONAL DISORDER [None]
  - ASTHENIA [None]
  - DEPRESSION [None]
  - FEELING ABNORMAL [None]
  - LETHARGY [None]
  - PERSONALITY CHANGE [None]
